FAERS Safety Report 24116852 (Version 1)
Quarter: 2024Q3

REPORT INFORMATION
  Report Type: Report from Study
  Country: CN (occurrence: CN)
  Receive Date: 20240722
  Receipt Date: 20240722
  Transmission Date: 20241016
  Serious: Yes (Death)
  Sender: ROCHE
  Company Number: CN-ROCHE-10000003197

PATIENT
  Age: 72 Year
  Sex: Male

DRUGS (2)
  1. POLATUZUMAB VEDOTIN [Suspect]
     Active Substance: POLATUZUMAB VEDOTIN
     Indication: Diffuse large B-cell lymphoma
     Route: 042
     Dates: start: 20240225
  2. COLUMVI [Suspect]
     Active Substance: GLOFITAMAB-GXBM
     Indication: Diffuse large B-cell lymphoma
     Route: 042
     Dates: start: 20240311

REACTIONS (2)
  - COVID-19 [Unknown]
  - Pulmonary embolism [Fatal]
